FAERS Safety Report 5264778-X (Version None)
Quarter: 2007Q1

REPORT INFORMATION
  Report Type: 
  Country: None (occurrence: None)
  Receive Date: 20070314
  Receipt Date: 20070301
  Transmission Date: 20070707
  Serious: Yes (Hospitalization)
  Sender: FDA-Public Use
  Company Number: PHBS2007IT03924

PATIENT
  Sex: Male

DRUGS (2)
  1. CLOZAPINE [Suspect]
     Indication: PSYCHOTIC DISORDER
     Dosage: 125 MG/DAY
     Route: 048
  2. MIRTAZAPINE [Concomitant]
     Dosage: 30 MG, UNK

REACTIONS (6)
  - ARTERIAL THROMBOSIS [None]
  - EOSINOPHILIA [None]
  - GASTROINTESTINAL DISORDER [None]
  - ISCHAEMIC STROKE [None]
  - LEUKOCYTOSIS [None]
  - PYREXIA [None]
